FAERS Safety Report 7374701-X (Version None)
Quarter: 2011Q1

REPORT INFORMATION
  Report Type: 
  Country: None (occurrence: None)
  Receive Date: 20110325
  Receipt Date: 20100809
  Transmission Date: 20110831
  Serious: No
  Sender: FDA-Public Use
  Company Number: US-MYLANLABS-2010S1014631

PATIENT
  Age: 52 Year
  Sex: Female

DRUGS (3)
  1. FENTANYL-100 [Suspect]
     Indication: ARTHRITIS
     Dosage: CHANGED Q72H
     Route: 062
     Dates: start: 20090601
  2. LEVOTHYROXINE SODIUM [Concomitant]
     Indication: HYPOTHYROIDISM
  3. FENTANYL-100 [Suspect]
     Indication: FIBROMYALGIA
     Dosage: CHANGED Q72H
     Route: 062
     Dates: start: 20090601

REACTIONS (4)
  - PAIN [None]
  - DRUG INEFFECTIVE [None]
  - APPLICATION SITE PRURITUS [None]
  - APPLICATION SITE BURN [None]
